FAERS Safety Report 23030716 (Version 2)
Quarter: 2023Q4

REPORT INFORMATION
  Report Type: Spontaneous
  Country: US (occurrence: US)
  Receive Date: 20231005
  Receipt Date: 20231007
  Transmission Date: 20240109
  Serious: No
  Sender: FDA-Public Use
  Company Number: US-JNJFOC-20230965439

PATIENT
  Age: 61 Year
  Sex: Male
  Weight: 190 kg

DRUGS (4)
  1. SPRAVATO [Suspect]
     Active Substance: ESKETAMINE
     Indication: Major depression
     Dates: start: 202309
  2. SPRAVATO [Suspect]
     Active Substance: ESKETAMINE
     Dates: start: 202309
  3. BUPROPION [Concomitant]
     Active Substance: BUPROPION
  4. ADVAIR HFA [Concomitant]
     Active Substance: FLUTICASONE PROPIONATE\SALMETEROL XINAFOATE

REACTIONS (5)
  - Product administration error [Unknown]
  - Nasal oedema [Unknown]
  - Hyperaesthesia [Unknown]
  - Nasal discomfort [Unknown]
  - Rhinorrhoea [Unknown]

NARRATIVE: CASE EVENT DATE: 20230901
